FAERS Safety Report 6336897-8 (Version None)
Quarter: 2009Q3

REPORT INFORMATION
  Report Type: 
  Country: None (occurrence: None)
  Receive Date: 20090901
  Receipt Date: 20090821
  Transmission Date: 20100115
  Serious: Yes (Other)
  Sender: FDA-Public Use
  Company Number: PHHY2009BR35909

PATIENT
  Sex: Female

DRUGS (2)
  1. TEGRETOL [Suspect]
     Indication: TRIGEMINAL NEURALGIA
     Dosage: 200 MG, BID
     Dates: start: 20090201
  2. TEGRETOL [Suspect]
     Dosage: 200 MG, TID

REACTIONS (4)
  - CRYING [None]
  - NERVOUSNESS [None]
  - PARAESTHESIA [None]
  - SHOCK [None]
